FAERS Safety Report 14303454 (Version 1)
Quarter: 2017Q4

REPORT INFORMATION
  Report Type: Spontaneous
  Country: US (occurrence: US)
  Receive Date: 20171219
  Receipt Date: 20171219
  Transmission Date: 20180321
  Serious: Yes (Hospitalization)
  Sender: FDA-Public Use
  Company Number: US-OTSUKA-20652533

PATIENT
  Sex: Male
  Weight: 88.43 kg

DRUGS (2)
  1. ABILIFY [Suspect]
     Active Substance: ARIPIPRAZOLE
     Indication: PRODUCT USED FOR UNKNOWN INDICATION
     Dosage: DOSE INCREASED:15MG,30MG
     Route: 065
  2. COGENTIN [Concomitant]
     Active Substance: BENZTROPINE MESYLATE
     Indication: PRODUCT USED FOR UNKNOWN INDICATION
     Dosage: UNK
     Route: 065

REACTIONS (7)
  - Oculogyric crisis [Unknown]
  - Loss of consciousness [Unknown]
  - Anxiety [Unknown]
  - Seizure [Unknown]
  - Depression [Unknown]
  - Wrong technique in product usage process [Unknown]
  - Off label use [Unknown]
